FAERS Safety Report 4980574-2 (Version None)
Quarter: 2006Q2

REPORT INFORMATION
  Report Type: 
  Country: None (occurrence: None)
  Receive Date: 20060424
  Receipt Date: 20050218
  Transmission Date: 20061013
  Serious: Yes (Hospitalization, Other)
  Sender: FDA-Public Use
  Company Number: US-MERCK-0502USA02913

PATIENT
  Age: 57 Year
  Sex: Female
  Weight: 86 kg

DRUGS (38)
  1. VIOXX [Suspect]
     Indication: ARTHRITIS
     Route: 048
     Dates: start: 20000523, end: 20040903
  2. AVAPRO [Concomitant]
     Route: 065
  3. LIPITOR [Concomitant]
     Route: 065
  4. NOVOLIN [Concomitant]
     Route: 065
  5. PROPULSID [Concomitant]
     Route: 065
  6. ACCUPRIL [Concomitant]
     Route: 065
  7. CEPHALEXIN [Concomitant]
     Route: 065
  8. PROPOXYPHENE HYDROCHLORIDE [Concomitant]
     Route: 065
  9. ROXILOX [Concomitant]
     Route: 065
  10. RELAFEN [Concomitant]
     Route: 065
  11. NORTRIPTYLINE [Concomitant]
     Route: 065
  12. QUININE [Concomitant]
     Route: 065
  13. ULTRAM [Concomitant]
     Route: 065
  14. AUGMENTIN '125' [Concomitant]
     Route: 065
  15. CLINDAMYCIN [Concomitant]
     Route: 065
  16. LEVAQUIN [Concomitant]
     Route: 065
  17. HYDROCODONE BITARTRATE [Concomitant]
     Route: 065
  18. DURAGESIC-100 [Concomitant]
     Route: 065
  19. DEMADEX [Concomitant]
     Route: 065
  20. SYNVISC [Concomitant]
     Route: 065
  21. FLUOCINONIDE [Concomitant]
     Route: 065
  22. CLOTRIMAZOLE [Concomitant]
     Route: 065
  23. ACETAMINOPHEN AND TRAMADOL HYDROCHLORIDE [Concomitant]
     Route: 065
  24. LORAZEPAM [Concomitant]
     Route: 065
  25. NITROFURANTOIN [Concomitant]
     Route: 065
  26. RANITIDINE [Concomitant]
     Route: 065
  27. COZAAR [Concomitant]
     Route: 065
  28. TORSEMIDE [Concomitant]
     Route: 065
  29. GENTAMICIN [Concomitant]
     Route: 065
  30. MEPERIDINE HYDROCHLORIDE [Concomitant]
     Route: 065
  31. TRICOR [Concomitant]
     Route: 065
  32. CLOBETASOL PROPIONATE [Concomitant]
     Route: 065
  33. ERYTHROMYCIN [Concomitant]
     Route: 065
  34. AMOXICILLIN AND CLAVULANATE POTASSIUM [Concomitant]
     Route: 065
  35. SALSALATE [Concomitant]
     Route: 065
  36. MECLIZINE [Concomitant]
     Route: 065
  37. OXYCODONE [Concomitant]
     Route: 065
  38. PLAVIX [Concomitant]
     Route: 065

REACTIONS (23)
  - CELLULITIS [None]
  - CEREBRAL ARTERY OCCLUSION [None]
  - CEREBROVASCULAR ACCIDENT [None]
  - CERVICOBRACHIAL SYNDROME [None]
  - CORONARY ARTERY DISEASE [None]
  - DIABETIC FOOT [None]
  - DIZZINESS [None]
  - DYSLIPIDAEMIA [None]
  - HUMERUS FRACTURE [None]
  - HYPERTENSION [None]
  - LOCALISED INFECTION [None]
  - MYOCARDIAL INFARCTION [None]
  - NEUROPATHY PERIPHERAL [None]
  - OSTEOMYELITIS [None]
  - PALPITATIONS [None]
  - RENAL DISORDER [None]
  - RENAL FAILURE [None]
  - RETINOPATHY [None]
  - SPINAL COLUMN STENOSIS [None]
  - STAPHYLOCOCCAL INFECTION [None]
  - TOE AMPUTATION [None]
  - TOE DEFORMITY [None]
  - UPPER LIMB FRACTURE [None]
